FAERS Safety Report 11938216 (Version 2)
Quarter: 2016Q1

REPORT INFORMATION
  Report Type: Spontaneous
  Country: US (occurrence: US)
  Receive Date: 20160122
  Receipt Date: 20160302
  Transmission Date: 20160526
  Serious: Yes (Other)
  Sender: FDA-Public Use
  Company Number: US-PROCTER+GAMBLE-GS16002258

PATIENT

DRUGS (1)
  1. VICKS VAPORUB [Suspect]
     Active Substance: CAMPHOR (SYNTHETIC)\EUCALYPTUS OIL\MENTHOL
     Dosage: UNKNOWN
     Route: 048

REACTIONS (4)
  - Malaise [Unknown]
  - Exposure via ingestion [Unknown]
  - Dependence [Unknown]
  - Mental disorder [Unknown]
